FAERS Safety Report 9909122 (Version 3)
Quarter: 2014Q2

REPORT INFORMATION
  Report Type: Report from Study
  Country: JP (occurrence: JP)
  Receive Date: 20140219
  Receipt Date: 20140423
  Transmission Date: 20141212
  Serious: Yes (Hospitalization, Disabling, Other)
  Sender: FDA-Public Use
  Company Number: JP-PFIZER INC-2014043396

PATIENT
  Age: 77 Year
  Sex: Male
  Weight: 50.2 kg

DRUGS (7)
  1. CRIZOTINIB [Suspect]
     Indication: NON-SMALL CELL LUNG CANCER
     Dosage: 250 MG, 2X/DAY
     Route: 048
     Dates: start: 20130925, end: 20131010
  2. CRIZOTINIB [Suspect]
     Dosage: 250 MG, 1X/DAY
     Route: 048
     Dates: start: 20131017, end: 20131027
  3. CRIZOTINIB [Suspect]
     Dosage: 250 MG, 2X/DAY
     Route: 048
     Dates: start: 20131028, end: 20131105
  4. RESPLEN [Concomitant]
     Dosage: 30 MG, 3X/DAY
     Route: 048
  5. MUCODYNE [Concomitant]
     Dosage: 500 MG, 3X/DAY
     Route: 048
  6. MUCOSOLVAN [Concomitant]
     Dosage: 45 MG, 1X/DAY
     Route: 048
  7. MAGMITT [Concomitant]
     Dosage: 250 MG, 3X/DAY
     Route: 048

REACTIONS (1)
  - Pulmonary fibrosis [Recovered/Resolved with Sequelae]
